FAERS Safety Report 5040990-X (Version None)
Quarter: 2006Q3

REPORT INFORMATION
  Report Type: 
  Country: None (occurrence: None)
  Receive Date: 20060703
  Receipt Date: 20030207
  Transmission Date: 20061208
  Serious: Yes (Other)
  Sender: FDA-Public Use
  Company Number: US-GLAXOSMITHKLINE-A0395998A

PATIENT
  Age: 24 Year
  Sex: Male

DRUGS (4)
  1. PARNATE [Suspect]
     Indication: DEPRESSION
     Dosage: 10MG SEE DOSAGE TEXT
     Route: 048
     Dates: start: 19980101
  2. VITAMINS [Concomitant]
  3. HERBAL SUPPLEMENTS [Concomitant]
  4. KLONOPIN [Concomitant]

REACTIONS (5)
  - DRUG INEFFECTIVE [None]
  - ENERGY INCREASED [None]
  - HEADACHE [None]
  - INSOMNIA [None]
  - MANIA [None]
